FAERS Safety Report 8353142-2 (Version None)
Quarter: 2012Q2

REPORT INFORMATION
  Report Type: 
  Country: None (occurrence: None)
  Receive Date: 20120511
  Receipt Date: 20120508
  Transmission Date: 20120825
  Serious: Yes (Congenital Anomaly, Other)
  Sender: FDA-Public Use
  Company Number: US-PFIZER INC-2012003375

PATIENT
  Sex: Female

DRUGS (4)
  1. ZOLOFT [Suspect]
     Dosage: 50 MG, UNK
     Route: 064
     Dates: start: 20030108
  2. ZOLOFT [Suspect]
     Indication: ANXIETY DISORDER
     Dosage: 100 MG, UNK
     Route: 064
     Dates: start: 20020528
  3. ZOLOFT [Suspect]
     Dosage: ^50 UNKNOWN UNITS^
     Route: 064
     Dates: start: 20020918
  4. MULTI-VITAMINS [Concomitant]
     Dosage: UNK
     Route: 064
     Dates: start: 20020820

REACTIONS (2)
  - MATERNAL EXPOSURE TIMING UNSPECIFIED [None]
  - PULMONARY ARTERY ATRESIA [None]
